FAERS Safety Report 5775140-5 (Version None)
Quarter: 2008Q2

REPORT INFORMATION
  Report Type: 
  Country: None (occurrence: None)
  Receive Date: 20080616
  Receipt Date: 20080616
  Transmission Date: 20081010
  Serious: Yes (Other)
  Sender: FDA-Public Use
  Company Number: None

PATIENT
  Age: 56 Year
  Sex: Female
  Weight: 56.246 kg

DRUGS (1)
  1. BONIVA [Suspect]
     Dosage: PO
     Route: 048

REACTIONS (4)
  - ARTHRALGIA [None]
  - GASTROENTERITIS [None]
  - HEADACHE [None]
  - MYALGIA [None]
